FAERS Safety Report 21185880 (Version 1)
Quarter: 2022Q3

REPORT INFORMATION
  Report Type: Report from Study
  Country: US (occurrence: US)
  Receive Date: 20220808
  Receipt Date: 20220808
  Transmission Date: 20221027
  Serious: Yes (Other)
  Sender: FDA-Public Use
  Company Number: US-UCBSA-2022043236

PATIENT
  Sex: Male

DRUGS (1)
  1. LEVETIRACETAM [Suspect]
     Active Substance: LEVETIRACETAM
     Indication: Seizure
     Dosage: 250 MILLIGRAM, 2X/DAY (BID)

REACTIONS (7)
  - Suicidal ideation [Recovering/Resolving]
  - Pulseless electrical activity [Not Recovered/Not Resolved]
  - Depression [Recovering/Resolving]
  - Wrong technique in product usage process [Unknown]
  - Headache [Not Recovered/Not Resolved]
  - Thinking abnormal [Not Recovered/Not Resolved]
  - Visual impairment [Not Recovered/Not Resolved]
